FAERS Safety Report 11331070 (Version 1)
Quarter: 2015Q3

REPORT INFORMATION
  Report Type: Report from Study
  Country: US (occurrence: US)
  Receive Date: 20150803
  Receipt Date: 20150803
  Transmission Date: 20151125
  Serious: Yes (Hospitalization, Other)
  Sender: FDA-Public Use
  Company Number: US-ABBVIE-15K-163-1434527-00

PATIENT
  Age: 79 Year
  Sex: Male
  Weight: 138.47 kg

DRUGS (2)
  1. SORIATANE [Concomitant]
     Active Substance: ACITRETIN
     Indication: PSORIASIS
  2. HUMIRA [Suspect]
     Active Substance: ADALIMUMAB
     Indication: PSORIASIS
     Route: 058
     Dates: start: 201406

REACTIONS (12)
  - Carotid artery occlusion [Unknown]
  - Red blood cell count decreased [Unknown]
  - Haemoglobin decreased [Unknown]
  - Red cell distribution width increased [Unknown]
  - Cataract [Unknown]
  - Urinary tract infection [Recovering/Resolving]
  - Blood urea increased [Unknown]
  - Blood creatinine increased [Unknown]
  - Cardiac failure congestive [Recovering/Resolving]
  - Haematocrit decreased [Unknown]
  - Dyspnoea [Recovered/Resolved]
  - Blood chloride decreased [Unknown]

NARRATIVE: CASE EVENT DATE: 2015
